FAERS Safety Report 7413890-5 (Version None)
Quarter: 2011Q2

REPORT INFORMATION
  Report Type: 
  Country: None (occurrence: None)
  Receive Date: 20110414
  Receipt Date: 20110406
  Transmission Date: 20111010
  Serious: Yes (Hospitalization)
  Sender: FDA-Public Use
  Company Number: US-BIOGENIDEC-2011BI010359

PATIENT
  Age: 44 Year
  Sex: Female

DRUGS (2)
  1. TYSABRI [Suspect]
     Indication: MULTIPLE SCLEROSIS
     Dates: start: 20080109, end: 20110205
  2. TYSABRI [Suspect]
     Dates: start: 20110401

REACTIONS (3)
  - MALAISE [None]
  - NAUSEA [None]
  - LIGAMENT INJURY [None]
